APPROVED DRUG PRODUCT: OLANZAPINE
Active Ingredient: OLANZAPINE
Strength: 5MG
Dosage Form/Route: TABLET, ORALLY DISINTEGRATING;ORAL
Application: A204320 | Product #001
Applicant: AJANTA PHARMA LTD
Approved: May 30, 2017 | RLD: No | RS: No | Type: DISCN